FAERS Safety Report 6876082-4 (Version None)
Quarter: 2010Q3

REPORT INFORMATION
  Report Type: 
  Country: None (occurrence: None)
  Receive Date: 20100727
  Receipt Date: 20100719
  Transmission Date: 20110219
  Serious: Yes (Death)
  Sender: FDA-Public Use
  Company Number: US-CELGENEUS-163-21880-10063134

PATIENT
  Sex: Female

DRUGS (4)
  1. REVLIMID [Suspect]
     Indication: MYELODYSPLASTIC SYNDROME
     Route: 048
     Dates: start: 20100301, end: 20100510
  2. AMICAR [Concomitant]
     Indication: THROMBOCYTOPENIA
     Dates: start: 20090701, end: 20100622
  3. CATAPRES [Concomitant]
     Indication: HYPERTENSION
     Route: 062
     Dates: end: 20100622
  4. HYDROCHLOROTHIAZIDE [Concomitant]
     Indication: HYPERTENSION
     Route: 048
     Dates: end: 20100622

REACTIONS (1)
  - CEREBROVASCULAR ACCIDENT [None]
